FAERS Safety Report 17839900 (Version 1)
Quarter: 2020Q2

REPORT INFORMATION
  Report Type: Spontaneous
  Country: US (occurrence: US)
  Receive Date: 20200529
  Receipt Date: 20200529
  Transmission Date: 20200714
  Serious: No
  Sender: FDA-Public Use
  Company Number: US-BAUSCH-BL-2020-015273

PATIENT
  Age: 6 Decade
  Sex: Female

DRUGS (5)
  1. RENOVA [Concomitant]
     Active Substance: TRETINOIN
     Indication: PRODUCT USED FOR UNKNOWN INDICATION
     Dosage: USED PREVIOUSLY
     Route: 061
  2. RETIN-A [Concomitant]
     Active Substance: TRETINOIN
     Indication: PRODUCT USED FOR UNKNOWN INDICATION
     Dosage: USED PREVIOUSLY
     Route: 061
  3. RETIN-A [Concomitant]
     Active Substance: TRETINOIN
     Dosage: SWITCHED BACK
     Route: 061
  4. RENOVA [Concomitant]
     Active Substance: TRETINOIN
     Dosage: SWITCHED BACK
     Route: 061
  5. ALTRENO [Suspect]
     Active Substance: TRETINOIN
     Indication: ACNE
     Route: 061

REACTIONS (1)
  - Drug hypersensitivity [Unknown]
